FAERS Safety Report 5092738-0 (Version None)
Quarter: 2006Q3

REPORT INFORMATION
  Report Type: 
  Country: None (occurrence: None)
  Receive Date: 20060828
  Receipt Date: 20060816
  Transmission Date: 20061208
  Serious: Yes (Death, Hospitalization)
  Sender: FDA-Public Use
  Company Number: 2005073824

PATIENT
  Age: 71 Year
  Sex: Female
  Weight: 120.2032 kg

DRUGS (5)
  1. BEXTRA [Suspect]
     Indication: DRUG USE FOR UNKNOWN INDICATION
     Dosage: 10 MEQ (10 MG, 1 IN 1 D)
     Dates: start: 20020403
  2. ZOCOR [Concomitant]
  3. LISINOPRIL [Concomitant]
  4. LABETALOL HCL [Concomitant]
  5. LANTUS [Concomitant]

REACTIONS (6)
  - CARDIAC DISORDER [None]
  - CONDITION AGGRAVATED [None]
  - DIABETES MELLITUS [None]
  - HYPERTENSION [None]
  - OBESITY [None]
  - RESPIRATORY FAILURE [None]
